FAERS Safety Report 18259449 (Version 4)
Quarter: 2022Q1

REPORT INFORMATION
  Report Type: Report from Study
  Country: JP (occurrence: JP)
  Receive Date: 20200911
  Receipt Date: 20220302
  Transmission Date: 20220423
  Serious: Yes (Hospitalization, Other)
  Sender: FDA-Public Use
  Company Number: JP-JNJFOC-A-CH2017-165021

PATIENT
  Age: 34 Year
  Sex: Female
  Weight: 50.2 kg

DRUGS (35)
  1. OPSUMIT [Suspect]
     Active Substance: MACITENTAN
     Indication: Pulmonary arterial hypertension
     Dosage: 10 MG, QD   IN THE MORNING
     Route: 048
     Dates: start: 20170315
  2. OPSUMIT [Suspect]
     Active Substance: MACITENTAN
     Indication: Pulmonary arterial hypertension
     Dosage: 5 MG, QD
     Route: 048
     Dates: start: 20161111, end: 20170314
  3. OPSUMIT [Suspect]
     Active Substance: MACITENTAN
     Dosage: UNKNOWN TO ONGOING
     Route: 048
  4. UPTRAVI [Suspect]
     Active Substance: SELEXIPAG
     Indication: Pulmonary arterial hypertension
     Dosage: 0.2 MG, BID
     Route: 048
     Dates: start: 20180328, end: 20180409
  5. UPTRAVI [Suspect]
     Active Substance: SELEXIPAG
     Indication: Pulmonary hypertension
     Dosage: 0.4 MG, BID
     Route: 048
     Dates: start: 20180410, end: 20180426
  6. UPTRAVI [Suspect]
     Active Substance: SELEXIPAG
     Indication: Pulmonary arterial hypertension
     Dosage: 0.6 MG, BID
     Route: 048
     Dates: start: 20180427, end: 20180521
  7. UPTRAVI [Suspect]
     Active Substance: SELEXIPAG
     Dosage: 0.8 MG, BID
     Route: 048
     Dates: start: 20180522, end: 20190805
  8. UPTRAVI [Suspect]
     Active Substance: SELEXIPAG
     Route: 048
     Dates: start: 20190806, end: 20201112
  9. UPTRAVI [Suspect]
     Active Substance: SELEXIPAG
     Dosage: 0.8MG IN THE MORNING0.6MG IN THE EVENING
     Route: 048
     Dates: start: 20201113, end: 20201224
  10. UPTRAVI [Suspect]
     Active Substance: SELEXIPAG
     Route: 048
     Dates: start: 20201225, end: 20210128
  11. UPTRAVI [Suspect]
     Active Substance: SELEXIPAG
     Route: 048
     Dates: start: 20210129, end: 20210212
  12. UPTRAVI [Suspect]
     Active Substance: SELEXIPAG
     Route: 048
     Dates: start: 20210213, end: 20210319
  13. UPTRAVI [Suspect]
     Active Substance: SELEXIPAG
     Dosage: 0.4MG IN THE MORNING0.6MG IN THE EVENING
     Route: 048
     Dates: start: 20210320
  14. ADCIRCA [Suspect]
     Active Substance: TADALAFIL
     Indication: Pulmonary arterial hypertension
     Route: 048
     Dates: start: 20140207, end: 20210128
  15. ADCIRCA [Suspect]
     Active Substance: TADALAFIL
     Indication: Pulmonary arterial hypertension
  16. FUROSEMIDE [Concomitant]
     Active Substance: FUROSEMIDE
     Indication: Cardiac failure
  17. MAGNESIUM OXIDE [Concomitant]
     Active Substance: MAGNESIUM OXIDE
     Indication: Chronic gastritis
     Dosage: 600 MG, QD
     Route: 048
     Dates: start: 20140129
  18. MAGNESIUM OXIDE [Concomitant]
     Active Substance: MAGNESIUM OXIDE
     Route: 048
     Dates: start: 20210305
  19. LASIX [Concomitant]
     Active Substance: FUROSEMIDE
     Indication: Cardiac failure
     Dosage: 20 MG, QD
     Route: 048
     Dates: start: 20140130
  20. SPIRONOLACTONE [Concomitant]
     Active Substance: SPIRONOLACTONE
     Indication: Cardiac failure
     Dosage: 25 MG, QD
     Route: 048
     Dates: start: 20140130
  21. GASTER [Concomitant]
     Active Substance: FAMOTIDINE
     Route: 048
     Dates: start: 20140107, end: 20170710
  22. MOSAPRIDE CITRATE [Concomitant]
     Active Substance: MOSAPRIDE CITRATE
     Indication: Chronic gastritis
     Dosage: 15 MG, QD
  23. MOSAPRIDE CITRATE [Concomitant]
     Active Substance: MOSAPRIDE CITRATE
     Indication: Gastrooesophageal reflux disease
     Route: 048
     Dates: start: 20170523, end: 20210128
  24. VONOPRAZAN FUMARATE [Concomitant]
     Active Substance: VONOPRAZAN FUMARATE
     Indication: Gastrooesophageal reflux disease
     Dosage: 20 MG, QD
  25. VONOPRAZAN FUMARATE [Concomitant]
     Active Substance: VONOPRAZAN FUMARATE
     Route: 048
     Dates: start: 20170711
  26. REBAMIPIDE [Concomitant]
     Active Substance: REBAMIPIDE
     Indication: Chronic gastritis
     Dosage: 300 MG, QD
     Route: 048
     Dates: end: 20210128
  27. MOSAPRIDE CITRATE [Concomitant]
     Active Substance: MOSAPRIDE CITRATE
     Indication: Chronic gastritis
     Dates: end: 20210128
  28. SPIRONOLACTONE [Concomitant]
     Active Substance: SPIRONOLACTONE
     Indication: Cardiac failure
  29. ADEMPAS [Concomitant]
     Active Substance: RIOCIGUAT
     Indication: Pulmonary arterial hypertension
     Route: 048
     Dates: start: 20210129, end: 20210204
  30. ADEMPAS [Concomitant]
     Active Substance: RIOCIGUAT
     Route: 048
     Dates: start: 20210205, end: 20210218
  31. ADEMPAS [Concomitant]
     Active Substance: RIOCIGUAT
     Route: 048
     Dates: start: 20210219, end: 20210304
  32. ADEMPAS [Concomitant]
     Active Substance: RIOCIGUAT
     Route: 048
     Dates: start: 20210305
  33. PRIMPERAN [Concomitant]
     Active Substance: METOCLOPRAMIDE HYDROCHLORIDE
     Route: 048
     Dates: start: 20210129
  34. LOXOPROFEN SODIUM [Concomitant]
     Active Substance: LOXOPROFEN SODIUM
     Route: 048
     Dates: start: 20210129
  35. ORYCTOLAGUS CUNICULUS SKIN [Concomitant]
     Active Substance: ORYCTOLAGUS CUNICULUS SKIN
     Dosage: 16UNITS, 4 DF
     Route: 048
     Dates: start: 20210304

REACTIONS (13)
  - Breast cancer [Recovered/Resolved with Sequelae]
  - Pulmonary hypertension [Recovering/Resolving]
  - Tricuspid valve incompetence [Recovering/Resolving]
  - Dyspnoea [Recovering/Resolving]
  - Pulmonary arterial pressure increased [Recovering/Resolving]
  - Mastectomy [Recovered/Resolved]
  - Breast conserving surgery [Unknown]
  - Seasonal allergy [Recovered/Resolved]
  - Enterocolitis viral [Recovered/Resolved]
  - Cough [Recovered/Resolved]
  - Nausea [Recovered/Resolved]
  - Headache [Recovering/Resolving]
  - Pain in jaw [Recovered/Resolved]

NARRATIVE: CASE EVENT DATE: 20170123
